FAERS Safety Report 24931009 (Version 1)
Quarter: 2025Q1

REPORT INFORMATION
  Report Type: Report from Study
  Country: US (occurrence: US)
  Receive Date: 20250205
  Receipt Date: 20250205
  Transmission Date: 20250409
  Serious: No
  Sender: AURINIA PHARMACEUTICALS
  Company Number: US-AURINIA PHARMACEUTICALS INC.-AUR-007193

PATIENT
  Sex: Male

DRUGS (4)
  1. LUPKYNIS [Suspect]
     Active Substance: VOCLOSPORIN
     Indication: Lupus nephritis
     Route: 048
     Dates: start: 20241001
  2. LUPKYNIS [Suspect]
     Active Substance: VOCLOSPORIN
     Dosage: 23.7 MILLIGRAM, BID
     Route: 048
     Dates: start: 20240202
  3. OZEMPIC [Suspect]
     Active Substance: SEMAGLUTIDE
     Indication: Product used for unknown indication
  4. BENLYSTA [Concomitant]
     Active Substance: BELIMUMAB
     Indication: Product used for unknown indication

REACTIONS (11)
  - Ear infection [Unknown]
  - Muscle spasms [Not Recovered/Not Resolved]
  - Weight abnormal [Unknown]
  - Myalgia [Unknown]
  - Palpitations [Recovering/Resolving]
  - Gastrointestinal disorder [Unknown]
  - Fatigue [Not Recovered/Not Resolved]
  - Blood pressure abnormal [Unknown]
  - Therapy interrupted [Unknown]
  - Insurance issue [Unknown]
  - Labelled drug-drug interaction medication error [Unknown]
